FAERS Safety Report 12071855 (Version 1)
Quarter: 2016Q1

REPORT INFORMATION
  Report Type: Spontaneous
  Country: GB (occurrence: GB)
  Receive Date: 20160212
  Receipt Date: 20160212
  Transmission Date: 20160526
  Serious: Yes (Disabling)
  Sender: FDA-Public Use
  Company Number: GB-ASTRAZENECA-2016SE02391

PATIENT
  Age: 45 Year
  Sex: Female
  Weight: 70 kg

DRUGS (1)
  1. ZOLADEX [Suspect]
     Active Substance: GOSERELIN ACETATE
     Route: 058
     Dates: end: 2015

REACTIONS (7)
  - Hallucination, auditory [Unknown]
  - Mental disorder [Unknown]
  - Abulia [Unknown]
  - Paranoia [Unknown]
  - Hostility [Unknown]
  - Irritability [Unknown]
  - Mood altered [Unknown]
